FAERS Safety Report 5030667-9 (Version None)
Quarter: 2006Q2

REPORT INFORMATION
  Report Type: 
  Country: None (occurrence: None)
  Receive Date: 20060615
  Receipt Date: 20060602
  Transmission Date: 20061013
  Serious: Yes (Hospitalization)
  Sender: FDA-Public Use
  Company Number: 2006072196

PATIENT
  Age: 43 Year
  Sex: Female
  Weight: 54 kg

DRUGS (1)
  1. SUTENT [Suspect]
     Indication: HEPATIC NEOPLASM MALIGNANT NON-RESECTABLE
     Dosage: 50 MG (50 MG, 4 WEEKS INTERVAL: 2 WEEKS), ORAL
     Route: 048
     Dates: start: 20060406, end: 20060501

REACTIONS (5)
  - ANAEMIA [None]
  - HAEMOGLOBIN DECREASED [None]
  - PELVIC PAIN [None]
  - PERITONEAL EFFUSION [None]
  - PERITONEAL HAEMORRHAGE [None]
